FAERS Safety Report 9525678 (Version 2)
Quarter: 2013Q4

REPORT INFORMATION
  Report Type: Report from Study
  Country: US (occurrence: US)
  Receive Date: 20130916
  Receipt Date: 20131030
  Transmission Date: 20140711
  Serious: Yes (Other)
  Sender: FDA-Public Use
  Company Number: US-ROCHE-1274294

PATIENT
  Age: 59 Year
  Sex: Female

DRUGS (4)
  1. HERCEPTIN [Suspect]
     Indication: BREAST CANCER
     Route: 065
  2. HERCEPTIN [Suspect]
     Route: 065
  3. PARAPLATIN [Concomitant]
  4. TAXOTERE [Concomitant]

REACTIONS (4)
  - Renal failure acute [Unknown]
  - Pneumonia [Unknown]
  - Sepsis [Unknown]
  - Performance status decreased [Unknown]
